FAERS Safety Report 9364143 (Version 1)
Quarter: 2013Q2

REPORT INFORMATION
  Report Type: Spontaneous
  Country: US (occurrence: None)
  Receive Date: 20130619
  Receipt Date: 20130619
  Transmission Date: 20140414
  Serious: Yes (Hospitalization)
  Sender: FDA-Public Use
  Company Number: 2013AP006056

PATIENT
  Age: 60 Year
  Sex: Female

DRUGS (4)
  1. GABAPENTIN [Suspect]
  2. ZOLPIDEM TARTRATE TABLETS [Suspect]
  3. DIPHENHYDRAMINE [Suspect]
     Indication: DRUG ABUSE
  4. DEXTROMETHORPHAN [Suspect]

REACTIONS (6)
  - Delirium [None]
  - Hyponatraemia [None]
  - Ataxia [None]
  - Drug abuse [None]
  - Drug abuse [None]
  - Toxicity to various agents [None]
